FAERS Safety Report 5709819-8 (Version None)
Quarter: 2008Q2

REPORT INFORMATION
  Report Type: 
  Country: None (occurrence: None)
  Receive Date: 20080418
  Receipt Date: 20080410
  Transmission Date: 20081010
  Serious: Yes (Hospitalization)
  Sender: FDA-Public Use
  Company Number: US-ABBOTT-08P-163-0446725-00

PATIENT
  Sex: Female
  Weight: 61.29 kg

DRUGS (10)
  1. HUMIRA [Suspect]
     Indication: RHEUMATOID ARTHRITIS
     Route: 058
     Dates: start: 20061001, end: 20080301
  2. HUMIRA [Suspect]
     Route: 058
  3. HUMIRA [Suspect]
     Route: 058
     Dates: start: 20031201, end: 20050601
  4. HUMIRA [Suspect]
     Route: 058
     Dates: start: 20080401
  5. HUMIRA [Suspect]
     Route: 058
  6. CELECOXIB [Concomitant]
     Indication: RHEUMATOID ARTHRITIS
     Route: 048
  7. ACETAMINOPHEN W/ CODEINE [Concomitant]
     Indication: RHEUMATOID ARTHRITIS
     Route: 048
  8. ACETAMINOPHEN W/ CODEINE [Concomitant]
     Indication: MIGRAINE
  9. TYLOX [Concomitant]
     Indication: RHEUMATOID ARTHRITIS
     Route: 048
  10. TYLOX [Concomitant]
     Indication: MIGRAINE

REACTIONS (6)
  - ARTHRALGIA [None]
  - DIARRHOEA [None]
  - INJECTION SITE PAIN [None]
  - KNEE ARTHROPLASTY [None]
  - MIGRAINE [None]
  - PHARYNGITIS STREPTOCOCCAL [None]
